FAERS Safety Report 6133619-0 (Version None)
Quarter: 2009Q1

REPORT INFORMATION
  Report Type: 
  Country: None (occurrence: None)
  Receive Date: 20090326
  Receipt Date: 20090319
  Transmission Date: 20090719
  Serious: Yes (Hospitalization)
  Sender: FDA-Public Use
  Company Number: US-MERCK-0903USA01118

PATIENT
  Age: 63 Year
  Sex: Male
  Weight: 92 kg

DRUGS (22)
  1. JANUVIA [Suspect]
     Indication: DIABETES MELLITUS
     Route: 048
     Dates: start: 20090204, end: 20090226
  2. LIPITOR [Concomitant]
     Route: 048
  3. TRICOR [Concomitant]
     Route: 048
  4. ZETIA [Concomitant]
     Route: 048
  5. ALLOPURINOL [Concomitant]
     Route: 048
  6. ATENOLOL [Concomitant]
     Route: 048
  7. GLIPIZIDE [Concomitant]
     Route: 048
  8. GLIPIZIDE [Concomitant]
     Route: 048
  9. LOVAZA [Concomitant]
     Route: 047
  10. NEXIUM [Concomitant]
     Route: 065
  11. QUINAPRIL HYDROCHLORIDE [Concomitant]
     Route: 048
  12. ASPIRIN [Concomitant]
     Route: 048
  13. TYLENOL [Concomitant]
     Route: 048
  14. CALCIUM (UNSPECIFIED) [Concomitant]
     Route: 048
  15. VITAMIN D (UNSPECIFIED) [Concomitant]
     Route: 048
  16. FLOMAX (MORNIFLUMATE) [Concomitant]
     Route: 048
  17. LANTUS [Concomitant]
     Route: 058
  18. LANTUS [Concomitant]
     Route: 058
  19. IMDUR [Concomitant]
     Route: 048
  20. NITROGLYCERIN [Concomitant]
     Indication: CHEST PAIN
  21. LEVOXYL [Concomitant]
     Route: 048
  22. LEVOXYL [Concomitant]
     Route: 048

REACTIONS (13)
  - ACUTE CORONARY SYNDROME [None]
  - ALANINE AMINOTRANSFERASE INCREASED [None]
  - ANGER [None]
  - ASPARTATE AMINOTRANSFERASE INCREASED [None]
  - CARDIAC ENZYMES INCREASED [None]
  - DRUG INEFFECTIVE [None]
  - HEADACHE [None]
  - HEPATIC FUNCTION ABNORMAL [None]
  - IDIOPATHIC THROMBOCYTOPENIC PURPURA [None]
  - PAIN IN JAW [None]
  - PLATELET COUNT DECREASED [None]
  - STRESS [None]
  - THROMBOCYTOPENIA [None]
